FAERS Safety Report 6974541-7 (Version None)
Quarter: 2010Q3

REPORT INFORMATION
  Report Type: 
  Country: None (occurrence: None)
  Receive Date: 20100909
  Receipt Date: 20100831
  Transmission Date: 20110219
  Serious: Yes (Other)
  Sender: FDA-Public Use
  Company Number: ES-ABBOTT-08P-144-0444404-02

PATIENT
  Sex: Female

DRUGS (8)
  1. HUMIRA [Suspect]
     Indication: RHEUMATOID ARTHRITIS
     Route: 058
     Dates: start: 20041124
  2. ACETAMINOPHEN [Concomitant]
     Indication: PAIN
     Dates: start: 20070301
  3. URSOBILANE [Concomitant]
     Indication: HEPATIC CIRRHOSIS
  4. NORPRAMIN [Concomitant]
     Indication: PROPHYLAXIS AGAINST GASTROINTESTINAL ULCER
     Dates: start: 19940101
  5. ENALAPRIL MALEATE AND HYDROCHLOROTHIAZIDE [Concomitant]
     Indication: HYPERTENSION
     Dosage: 20 MG/125 MG
     Dates: start: 20050101
  6. LORAMET [Concomitant]
     Indication: INSOMNIA
     Dates: start: 20040901
  7. TRANKIMAZIN [Concomitant]
     Indication: ANXIETY
     Dates: start: 20041101
  8. HUMIRA [Concomitant]
     Indication: RHEUMATOID ARTHRITIS
     Route: 058
     Dates: start: 20040428

REACTIONS (1)
  - AUTOIMMUNE HEPATITIS [None]
